FAERS Safety Report 8155976-6 (Version None)
Quarter: 2012Q1

REPORT INFORMATION
  Report Type: 
  Country: None (occurrence: None)
  Receive Date: 20120216
  Receipt Date: 20120202
  Transmission Date: 20120608
  Serious: Yes (Other)
  Sender: FDA-Public Use
  Company Number: 2012P1003944

PATIENT
  Age: 63 Year
  Sex: Male

DRUGS (5)
  1. AZATHIOPRINE [Concomitant]
  2. PREDNISOLONE [Suspect]
     Indication: AUTOIMMUNE HEPATITIS
     Dosage: 60 MG;QD
  3. PREDNISOLONE [Suspect]
     Indication: OVERLAP SYNDROME
     Dosage: 60 MG;QD
  4. PREDNISOLONE [Suspect]
     Indication: BILIARY CIRRHOSIS PRIMARY
     Dosage: 60 MG;QD
  5. TACROLIMUS [Concomitant]

REACTIONS (5)
  - NO THERAPEUTIC RESPONSE [None]
  - DYSPNOEA [None]
  - LIPOMATOSIS [None]
  - CUSHINGOID [None]
  - HEPATITIS CHOLESTATIC [None]
